FAERS Safety Report 15408519 (Version 1)
Quarter: 2018Q3

REPORT INFORMATION
  Report Type: Spontaneous
  Country: US (occurrence: US)
  Receive Date: 20180920
  Receipt Date: 20180920
  Transmission Date: 20181010
  Serious: No
  Sender: FDA-Public Use
  Company Number: US-ELI_LILLY_AND_COMPANY-US201809003858

PATIENT
  Age: 71 Year
  Sex: Male

DRUGS (5)
  1. CIALIS [Suspect]
     Active Substance: TADALAFIL
     Indication: CYSTITIS INTERSTITIAL
  2. CIALIS [Suspect]
     Active Substance: TADALAFIL
     Indication: EJACULATION DISORDER
  3. CIALIS [Suspect]
     Active Substance: TADALAFIL
     Indication: PROSTATITIS
     Dosage: 20 MG, DAILY
     Route: 048
  4. CIALIS [Suspect]
     Active Substance: TADALAFIL
     Indication: BENIGN PROSTATIC HYPERPLASIA
     Dosage: 5 MG, DAILY
     Route: 048
  5. AVODART [Concomitant]
     Active Substance: DUTASTERIDE

REACTIONS (1)
  - Ejaculation delayed [Not Recovered/Not Resolved]
